FAERS Safety Report 21453136 (Version 1)
Quarter: 2022Q4

REPORT INFORMATION
  Report Type: Spontaneous
  Country: CH (occurrence: CH)
  Receive Date: 20221013
  Receipt Date: 20221013
  Transmission Date: 20230112
  Serious: Yes (Hospitalization)
  Sender: FDA-Public Use
  Company Number: None

PATIENT
  Age: 81 Year
  Sex: Female
  Weight: 61 kg

DRUGS (14)
  1. PREGABALIN [Suspect]
     Active Substance: PREGABALIN
     Indication: Product used for unknown indication
     Dosage: 300MG QD (1-0-0-0)
     Route: 048
     Dates: start: 202208, end: 20220902
  2. PHENPROCOUMON [Suspect]
     Active Substance: PHENPROCOUMON
     Indication: Product used for unknown indication
     Dosage: UNK UNK, QD (ACCORDING TO INR, TARGET 2.5 - 3.5)
     Route: 048
  3. PANTOZOL [Concomitant]
     Active Substance: PANTOPRAZOLE SODIUM
     Dosage: 40 MILLIGRAM, QD
     Route: 048
  4. POLYETHYLENE GLYCOL 3350\POTASSIUM CHLORIDE\SODIUM BICARBONATE\SODIUM [Concomitant]
     Active Substance: POLYETHYLENE GLYCOL 3350\POTASSIUM CHLORIDE\SODIUM BICARBONATE\SODIUM CHLORIDE
     Indication: Constipation
     Dosage: SECOND-LINE MEDICATION (1 AS NECESSARY)
     Route: 048
  5. CALCIUM\CHOLECALCIFEROL [Concomitant]
     Active Substance: CALCIUM\CHOLECALCIFEROL
     Dosage: 500 MG CALCIUM/ 1000 IE COLECHALCIFEROL, 1-0-0-0
     Route: 048
  6. ATORVASTATIN [Concomitant]
     Active Substance: ATORVASTATIN
     Indication: Dyslipidaemia
     Dosage: 10 MILLIGRAM, QD
     Route: 048
  7. INDAPAMIDE\PERINDOPRIL ARGININE [Concomitant]
     Active Substance: INDAPAMIDE\PERINDOPRIL ARGININE
     Dosage: 0.5 DOSAGE FORM, QD (5/1.25MG, 1/2-0-0-0)
     Route: 048
  8. TORSEMIDE [Concomitant]
     Active Substance: TORSEMIDE
     Dosage: 5 MILLIGRAM, QD
     Route: 048
  9. DAFALGAN [Concomitant]
     Active Substance: ACETAMINOPHEN
     Indication: Pain
     Dosage: 500 MG, PRN (SECOND-LINE MEDICATION ; AS NECESSARY)
     Route: 048
  10. MELATONIN [Concomitant]
     Active Substance: MELATONIN
     Indication: Sleep disorder
     Dosage: 2 MG, PRN (2 MG AS SECOND-LINE FOR SLEEPING)
     Route: 048
  11. LORAZEPAM [Concomitant]
     Active Substance: LORAZEPAM
     Indication: Restlessness
     Dosage: 1 MILLIGRAM, PRN (SECOND-LINE MEDICATION AS NECESSARY)
     Route: 048
  12. SODIUM PICOSULFATE [Concomitant]
     Active Substance: SODIUM PICOSULFATE
     Indication: Constipation
     Dosage: 1 ML, PRN (1 ML OR 15 (-20) DROPS AS SECOND-LINE)
     Route: 048
  13. PROLIA [Concomitant]
     Active Substance: DENOSUMAB
     Dosage: 60 MILLIGRAM, Q6MONTHS
     Route: 065
  14. ALDACTONE [Concomitant]
     Active Substance: SPIRONOLACTONE
     Dosage: 25 MILLIGRAM, QD (1-0-0-0)
     Route: 048

REACTIONS (2)
  - Fall [Recovering/Resolving]
  - Somnolence [Recovered/Resolved]

NARRATIVE: CASE EVENT DATE: 20220901
